FAERS Safety Report 9199208 (Version 1)
Quarter: 2013Q1

REPORT INFORMATION
  Report Type: Spontaneous
  Country: US (occurrence: None)
  Receive Date: 20130325
  Receipt Date: 20130325
  Transmission Date: 20140127
  Serious: No
  Sender: FDA-Public Use
  Company Number: 2013US-004593

PATIENT
  Age: 77 Year
  Sex: Male

DRUGS (7)
  1. OMONTYS (PEGINESATIDE) SOLUTION FOR INJECTION [Suspect]
     Indication: NEPHROGENIC ANAEMIA
     Dates: start: 20130208, end: 20130208
  2. EPOGEN (EPOETIN ALFA) [Concomitant]
  3. ASA (ACETYLSALICYLIC ACID) [Concomitant]
  4. CARVEDILOL (CARVEDILOL) [Concomitant]
  5. NORVASC (AMLODIPINE BESILATE) [Concomitant]
  6. PHOSLO (CALCIUM ACETATE) [Concomitant]
  7. PEPCID (FAMOTIDINE) [Concomitant]

REACTIONS (3)
  - Feeling abnormal [None]
  - Malaise [None]
  - Dizziness [None]
